FAERS Safety Report 4866281-5 (Version None)
Quarter: 2005Q4

REPORT INFORMATION
  Report Type: 
  Country: None (occurrence: None)
  Receive Date: 20051221
  Receipt Date: 20051207
  Transmission Date: 20060501
  Serious: Yes (Other)
  Sender: FDA-Public Use
  Company Number: US016496

PATIENT
  Age: 59 Year
  Sex: Female

DRUGS (6)
  1. GABITRIL [Suspect]
     Dosage: 12 MG QD ORAL
     Route: 048
  2. OXYCONTIN [Concomitant]
  3. QUETIAPINE FUMARATE [Concomitant]
  4. SOMA [Concomitant]
  5. BUPROPION [Concomitant]
  6. LEXAPRO [Concomitant]

REACTIONS (3)
  - ENCEPHALOPATHY [None]
  - PSYCHOMOTOR RETARDATION [None]
  - TREMOR [None]
